FAERS Safety Report 22541416 (Version 1)
Quarter: 2023Q2

REPORT INFORMATION
  Report Type: Spontaneous
  Country: US (occurrence: US)
  Receive Date: 20230609
  Receipt Date: 20230609
  Transmission Date: 20230722
  Serious: Yes (Hospitalization, Disabling)
  Sender: FDA-Public Use
  Company Number: US-C B Fleet Co Inc-202305-US-001662

PATIENT
  Age: 78 Year
  Sex: Female

DRUGS (1)
  1. POLYVINYL ALCOHOL\POVIDONE [Suspect]
     Active Substance: POLYVINYL ALCOHOL\POVIDONE
     Indication: Dry eye
     Dosage: 1-2 DROPS ONCE DAILY
     Route: 047
     Dates: start: 20230206, end: 20230422

REACTIONS (2)
  - Blindness [Recovered/Resolved]
  - Ocular hyperaemia [Recovered/Resolved]
